FAERS Safety Report 6214282-7 (Version None)
Quarter: 2009Q2

REPORT INFORMATION
  Report Type: 
  Country: None (occurrence: None)
  Receive Date: 20090604
  Receipt Date: 20070604
  Transmission Date: 20091009
  Serious: Yes (Other)
  Sender: FDA-Public Use
  Company Number: US-ASTRAZENECA-2006UW06860

PATIENT
  Age: 49 Year
  Sex: Male
  Weight: 111.1 kg

DRUGS (16)
  1. SEROQUEL [Suspect]
     Indication: DEPRESSION
     Dosage: APPROX. 25 MG TO 100MG PER DAY
     Route: 048
     Dates: start: 19990101, end: 20041101
  2. SEROQUEL [Suspect]
     Indication: BIPOLAR DISORDER
     Dosage: APPROX. 25 MG TO 100MG PER DAY
     Route: 048
     Dates: start: 19990101, end: 20041101
  3. SEROQUEL [Suspect]
     Indication: ANXIETY
     Dosage: APPROX. 25 MG TO 100MG PER DAY
     Route: 048
     Dates: start: 19990101, end: 20041101
  4. SEROQUEL [Suspect]
     Indication: MOOD SWINGS
     Dosage: APPROX. 25 MG TO 100MG PER DAY
     Route: 048
     Dates: start: 19990101, end: 20041101
  5. SEROQUEL [Suspect]
     Dosage: 25 MG TWICE A DAY, 25 MG THREE TIMES A DAY, 25 MG FOUR TIMES A DAY, 100 MG IN EVENING
     Route: 048
     Dates: start: 19990701
  6. SEROQUEL [Suspect]
     Dosage: 25 MG TWICE A DAY, 25 MG THREE TIMES A DAY, 25 MG FOUR TIMES A DAY, 100 MG IN EVENING
     Route: 048
     Dates: start: 19990701
  7. SEROQUEL [Suspect]
     Dosage: 25 MG TWICE A DAY, 25 MG THREE TIMES A DAY, 25 MG FOUR TIMES A DAY, 100 MG IN EVENING
     Route: 048
     Dates: start: 19990701
  8. SEROQUEL [Suspect]
     Dosage: 25 MG TWICE A DAY, 25 MG THREE TIMES A DAY, 25 MG FOUR TIMES A DAY, 100 MG IN EVENING
     Route: 048
     Dates: start: 19990701
  9. ZYPREXA [Suspect]
  10. DEPAKOTE [Concomitant]
     Dosage: 500 MG TAKE 1 TABLET TWICE A DAY, TAKE 2 IN MORNING AND TWO AT BEDTIME
     Dates: start: 19990701
  11. WELLBUTRIN SR [Concomitant]
     Dosage: 150-300 MG
     Dates: start: 19990701
  12. PROPRANOLOL HYDROCHLORIDE [Concomitant]
     Dosage: 10 MG TWICE A DAY, THREE TIMES A DAY
     Dates: start: 19990618
  13. CHLORDIAZEPOXIDE [Concomitant]
     Dosage: 25 MG THREE TIMES A DAY AS NEEDED, TAKE 2 CAPSULES EVERY 8 HOURS AS NEEDED
     Dates: start: 20050107
  14. GLIPIZIDE [Concomitant]
     Dosage: 5 MG TAKE ONE-HALF TABLET DAILY
     Dates: start: 20050120
  15. CAMPRAL [Concomitant]
     Dosage: 333 MG TAKE 2 TABLETS THREE TIMES A DAY
     Dates: start: 20050301
  16. LUNESTA [Concomitant]
     Dates: start: 20051025

REACTIONS (6)
  - ALCOHOLIC PANCREATITIS [None]
  - BLOOD GLUCOSE ABNORMAL [None]
  - BLOOD GLUCOSE INCREASED [None]
  - HYPERGLYCAEMIA [None]
  - PANCREATITIS [None]
  - TYPE 2 DIABETES MELLITUS [None]
